FAERS Safety Report 14976592 (Version 3)
Quarter: 2018Q2

REPORT INFORMATION
  Report Type: Spontaneous
  Country: BR (occurrence: BR)
  Receive Date: 20180605
  Receipt Date: 20180605
  Transmission Date: 20180711
  Serious: Yes (Hospitalization)
  Sender: FDA-Public Use
  Company Number: PHHY2018BR014615

PATIENT
  Age: 50 Year
  Sex: Female

DRUGS (3)
  1. WARFARIN [Interacting]
     Active Substance: WARFARIN
     Indication: PULMONARY EMBOLISM
     Dosage: 5 MG TWICE A WEEK AND 7.5 MG ON THE REMAINING DAYS
     Route: 065
  2. AMLODIPINE [Concomitant]
     Active Substance: AMLODIPINE BESYLATE
     Indication: HYPERTENSION
     Dosage: 10 MG, QD
     Route: 065
  3. DICLOFENAC [Suspect]
     Active Substance: DICLOFENAC
     Indication: MYALGIA
     Dosage: UNK
     Route: 065

REACTIONS (7)
  - Erythema [Unknown]
  - Ecchymosis [Unknown]
  - Breast pain [Unknown]
  - Gangrene [Unknown]
  - Skin disorder [Unknown]
  - Breast discolouration [Unknown]
  - Breast necrosis [Unknown]
